FAERS Safety Report 18327857 (Version 1)
Quarter: 2020Q3

REPORT INFORMATION
  Report Type: Spontaneous
  Country: PL (occurrence: PL)
  Receive Date: 20200930
  Receipt Date: 20200930
  Transmission Date: 20201103
  Serious: No
  Sender: FDA-Public Use
  Company Number: PL-LUPIN PHARMACEUTICALS INC.-2020-04482

PATIENT
  Age: 65 Year
  Sex: Female

DRUGS (3)
  1. METHOTREXATE. [Suspect]
     Active Substance: METHOTREXATE
     Indication: ERYTHEMA ANNULARE
     Dosage: 10 MILLIGRAM, WEEKLY
     Route: 065
  2. DOXYCYCLINE. [Suspect]
     Active Substance: DOXYCYCLINE
     Indication: ERYTHEMA ANNULARE
     Dosage: 100 MILLIGRAM, QD
     Route: 065
  3. HYDROXYCHLOROQUINE [Suspect]
     Active Substance: HYDROXYCHLOROQUINE
     Indication: ERYTHEMA ANNULARE
     Dosage: 200 MILLIGRAM, BID
     Route: 065

REACTIONS (1)
  - Drug ineffective for unapproved indication [Unknown]
